FAERS Safety Report 10736791 (Version 1)
Quarter: 2015Q1

REPORT INFORMATION
  Report Type: Spontaneous
  Country: US (occurrence: None)
  Receive Date: 20150122
  Receipt Date: 20150122
  Transmission Date: 20150721
  Serious: Yes (Hospitalization)
  Sender: FDA-Public Use
  Company Number: None

PATIENT
  Age: 70 Year
  Sex: Male
  Weight: 117.7 kg

DRUGS (2)
  1. DIAZEPAM. [Suspect]
     Active Substance: DIAZEPAM
     Indication: ANXIETY
     Dates: start: 20141022, end: 20141022
  2. IODIXANOL [Suspect]
     Active Substance: IODIXANOL
     Indication: NUCLEAR MAGNETIC RESONANCE IMAGING
     Dates: start: 20141021, end: 20141021

REACTIONS (5)
  - Rash pruritic [None]
  - Hypotension [None]
  - Urticaria [None]
  - Somnolence [None]
  - Malaise [None]

NARRATIVE: CASE EVENT DATE: 20141022
